FAERS Safety Report 11772764 (Version 1)
Quarter: 2015Q4

REPORT INFORMATION
  Report Type: Spontaneous
  Country: US (occurrence: US)
  Receive Date: 20151124
  Receipt Date: 20151124
  Transmission Date: 20160304
  Serious: Yes (Death, Other)
  Sender: FDA-Public Use
  Company Number: PHHY2015US150846

PATIENT
  Age: 61 Year
  Sex: Male

DRUGS (2)
  1. IMATINIB [Suspect]
     Active Substance: IMATINIB
     Indication: GASTROINTESTINAL STROMAL TUMOUR
     Dosage: 400 MG, QD
     Route: 065
  2. IMATINIB [Suspect]
     Active Substance: IMATINIB
     Dosage: 800 MG, QD
     Route: 065

REACTIONS (3)
  - Malignant neoplasm progression [Fatal]
  - Drug resistance [Fatal]
  - Gastrointestinal stromal tumour [Fatal]
